FAERS Safety Report 11247963 (Version 1)
Quarter: 2015Q3

REPORT INFORMATION
  Report Type: Spontaneous
  Country: GB (occurrence: None)
  Receive Date: 20150706
  Receipt Date: 20150706
  Transmission Date: 20151125
  Serious: Yes (Hospitalization)
  Sender: FDA-Public Use
  Company Number: GB2015K3956SPO

PATIENT
  Age: 57 Year
  Sex: Male

DRUGS (7)
  1. INDAPAMIDE WORLD (INDAPAMIDE) [Suspect]
     Active Substance: INDAPAMIDE
  2. BISOPROLOL [Concomitant]
     Active Substance: BISOPROLOL
  3. RAMIPRIL. [Concomitant]
     Active Substance: RAMIPRIL
  4. ATORVASTATIN [Concomitant]
     Active Substance: ATORVASTATIN
  5. WARFARIN [Concomitant]
     Active Substance: WARFARIN
  6. LANSOPRAZOLE GENERIC (LANSOPRAZOLE) UNKNOWN [Suspect]
     Active Substance: LANSOPRAZOLE
  7. IMIQUIMOD. [Concomitant]
     Active Substance: IMIQUIMOD

REACTIONS (4)
  - Syncope [None]
  - Hyponatraemia [None]
  - Hypotension [None]
  - Loss of consciousness [None]
